FAERS Safety Report 8078032-4 (Version None)
Quarter: 2012Q1

REPORT INFORMATION
  Report Type: 
  Country: None (occurrence: None)
  Receive Date: 20120127
  Receipt Date: 20110106
  Transmission Date: 20120608
  Serious: No
  Sender: FDA-Public Use
  Company Number: US-ABBOTT-11P-163-0695785-00

PATIENT
  Sex: Female
  Weight: 52.664 kg

DRUGS (4)
  1. METHOTREXATE [Suspect]
     Indication: PRODUCT USED FOR UNKNOWN INDICATION
     Route: 048
  2. ESTODOL [Concomitant]
     Indication: HORMONE REPLACEMENT THERAPY
  3. HUMIRA [Suspect]
     Indication: RHEUMATOID ARTHRITIS
     Dates: start: 20101101
  4. ZOLOFT [Concomitant]
     Indication: DEPRESSION

REACTIONS (7)
  - VOMITING [None]
  - INJECTION SITE HAEMATOMA [None]
  - PAIN [None]
  - FATIGUE [None]
  - INFLUENZA LIKE ILLNESS [None]
  - INJECTION SITE PAIN [None]
  - INJECTION SITE NODULE [None]
